FAERS Safety Report 22333616 (Version 2)
Quarter: 2023Q2

REPORT INFORMATION
  Report Type: Spontaneous
  Country: US (occurrence: US)
  Receive Date: 20230517
  Receipt Date: 20230605
  Transmission Date: 20230721
  Serious: Yes (Other)
  Sender: FDA-Public Use
  Company Number: US-PPDUS-2023ST000780

PATIENT
  Age: 62 Year
  Sex: Female

DRUGS (1)
  1. ORSERDU [Suspect]
     Active Substance: ELACESTRANT
     Indication: Product used for unknown indication
     Route: 048
     Dates: start: 20230429

REACTIONS (5)
  - Malignant neoplasm progression [Not Recovered/Not Resolved]
  - Thrombosis [Unknown]
  - Erythema [Recovering/Resolving]
  - Swelling [Recovering/Resolving]
  - Peripheral swelling [Recovering/Resolving]

NARRATIVE: CASE EVENT DATE: 20230430
